FAERS Safety Report 15930704 (Version 1)
Quarter: 2019Q1

REPORT INFORMATION
  Report Type: Spontaneous
  Country: US (occurrence: US)
  Receive Date: 20190207
  Receipt Date: 20190207
  Transmission Date: 20190417
  Serious: No
  Sender: FDA-Public Use
  Company Number: US-JNJFOC-20190121526

PATIENT
  Age: 27 Year
  Sex: Male
  Weight: 114.5 kg

DRUGS (1)
  1. YONDELIS [Suspect]
     Active Substance: TRABECTEDIN
     Indication: SARCOMA
     Route: 042
     Dates: start: 20181221

REACTIONS (2)
  - Inappropriate schedule of product administration [Unknown]
  - Device malfunction [Unknown]

NARRATIVE: CASE EVENT DATE: 20190110
